FAERS Safety Report 6018859-3 (Version None)
Quarter: 2008Q4

REPORT INFORMATION
  Report Type: 
  Country: None (occurrence: None)
  Receive Date: 20081221
  Receipt Date: 20081221
  Transmission Date: 20090506
  Serious: Yes (Life-Threatening, Hospitalization)
  Sender: FDA-Public Use
  Company Number: None

PATIENT
  Age: 64 Year
  Sex: Male
  Weight: 77.1115 kg

DRUGS (3)
  1. ENBREL [Suspect]
     Indication: PSORIATIC ARTHROPATHY
     Dosage: 50 MG ONCE WEEKLY SQ
     Route: 058
     Dates: start: 20050301
  2. METHOTREXATE [Concomitant]
  3. PREDNISONE TAB [Concomitant]

REACTIONS (5)
  - CLOSTRIDIUM DIFFICILE COLITIS [None]
  - ENCEPHALITIS HERPES [None]
  - HYPONATRAEMIA [None]
  - LIVER FUNCTION TEST ABNORMAL [None]
  - THROMBOCYTOPENIA [None]
